FAERS Safety Report 24656802 (Version 2)
Quarter: 2024Q4

REPORT INFORMATION
  Report Type: Report from Study
  Country: US (occurrence: US)
  Receive Date: 20241125
  Receipt Date: 20241127
  Transmission Date: 20250115
  Serious: Yes (Death)
  Sender: BOEHRINGER INGELHEIM
  Company Number: US-Komodo Health-a23aa000004PTkTAAW

PATIENT
  Age: 74 Year
  Sex: Male

DRUGS (1)
  1. JARDIANCE [Suspect]
     Active Substance: EMPAGLIFLOZIN
     Indication: Product used for unknown indication
     Route: 048
     Dates: start: 20241005, end: 20241025

REACTIONS (1)
  - Death [Fatal]

NARRATIVE: CASE EVENT DATE: 20241025
